FAERS Safety Report 18338278 (Version 1)
Quarter: 2020Q4

REPORT INFORMATION
  Report Type: Spontaneous
  Country: US (occurrence: US)
  Receive Date: 20201001
  Receipt Date: 20201001
  Transmission Date: 20210113
  Serious: Yes (Life-Threatening, Hospitalization, Other)
  Sender: FDA-Public Use
  Company Number: None

PATIENT
  Age: 66 Year
  Sex: Male
  Weight: 86.2 kg

DRUGS (12)
  1. BISACODYL. [Concomitant]
     Active Substance: BISACODYL
  2. CARBAMAZEPINE. [Suspect]
     Active Substance: CARBAMAZEPINE
     Indication: SEIZURE
     Route: 048
     Dates: start: 20200823, end: 20200928
  3. LEVOFLOXACIN. [Concomitant]
     Active Substance: LEVOFLOXACIN
  4. ONDANSETRON 4MG [Concomitant]
     Active Substance: ONDANSETRON
  5. SENNA [Concomitant]
     Active Substance: SENNA LEAF\SENNOSIDES\SENNOSIDES A AND B
  6. LORATADINE 10 MG [Concomitant]
     Active Substance: LORATADINE
  7. DICLOFENAC 1% GEL [Concomitant]
     Active Substance: DICLOFENAC
  8. POLYETHYLENE GLYCOL [Concomitant]
     Active Substance: POLYETHYLENE GLYCOLS
  9. ACETAMINOPHEN. [Concomitant]
     Active Substance: ACETAMINOPHEN
  10. LISINOPRIL 20 MG [Concomitant]
     Active Substance: LISINOPRIL
  11. VIMPAT [Concomitant]
     Active Substance: LACOSAMIDE
     Dates: start: 20200823, end: 20200928
  12. ATORVASTATIN [Concomitant]
     Active Substance: ATORVASTATIN

REACTIONS (10)
  - Drug reaction with eosinophilia and systemic symptoms [None]
  - Cerebrovascular accident [None]
  - Rash maculo-papular [None]
  - Eosinophilia [None]
  - Pyrexia [None]
  - Cough [None]
  - Lymphadenopathy [None]
  - Klebsiella test positive [None]
  - Seizure [None]
  - Culture urine positive [None]

NARRATIVE: CASE EVENT DATE: 20200928
